FAERS Safety Report 11554361 (Version 1)
Quarter: 2015Q3

REPORT INFORMATION
  Report Type: Spontaneous
  Country: US (occurrence: US)
  Receive Date: 20150925
  Receipt Date: 20150925
  Transmission Date: 20151125
  Serious: Yes (Other)
  Sender: FDA-Public Use
  Company Number: US-NOVOPROD-465039

PATIENT
  Age: 31 Year
  Sex: Female
  Weight: 91.4 kg

DRUGS (4)
  1. NOVOLOG [Suspect]
     Active Substance: INSULIN ASPART
     Dosage: BASAL 1.625 U/HR
     Route: 058
     Dates: start: 20141114
  2. PRENATAL VITAMINS                  /02014401/ [Concomitant]
     Active Substance: VITAMINS
     Indication: PRODUCT USED FOR UNKNOWN INDICATION
  3. NOVOLOG [Suspect]
     Active Substance: INSULIN ASPART
     Indication: TYPE 1 DIABETES MELLITUS
     Dosage: BOLUS 1U: 5 G CARBS 1U:20MG/DL }108 MG/DL TID BEFORE MEALS
     Route: 058
     Dates: start: 20140923
  4. LANTUS [Concomitant]
     Active Substance: INSULIN GLARGINE
     Indication: TYPE 1 DIABETES MELLITUS
     Dosage: 52 U, QD (QPM)
     Route: 058
     Dates: start: 20140923

REACTIONS (2)
  - Exposure during pregnancy [Recovered/Resolved]
  - Breech presentation [Recovered/Resolved]
